FAERS Safety Report 5444110-9 (Version None)
Quarter: 2007Q3

REPORT INFORMATION
  Report Type: 
  Country: None (occurrence: None)
  Receive Date: 20070831
  Receipt Date: 20070817
  Transmission Date: 20080115
  Serious: Yes (Hospitalization)
  Sender: FDA-Public Use
  Company Number: S05-CAN-04978-01

PATIENT
  Sex: Female

DRUGS (2)
  1. TIAZAC [Suspect]
  2. DILTIAZEM HYDROCHLORIDE [Suspect]

REACTIONS (2)
  - ATRIAL FIBRILLATION [None]
  - BRADYCARDIA [None]
